FAERS Safety Report 11132037 (Version 1)
Quarter: 2015Q2

REPORT INFORMATION
  Report Type: Report from Study
  Country: IT (occurrence: IT)
  Receive Date: 20150522
  Receipt Date: 20150522
  Transmission Date: 20150821
  Serious: Yes (Death)
  Sender: FDA-Public Use
  Company Number: IT-SA-2015SA068866

PATIENT

DRUGS (7)
  1. CISPLATIN. [Suspect]
     Active Substance: CISPLATIN
     Indication: GASTRIC CANCER
     Dosage: ON DAY 1 OF EVERY 2 WEEK CYCLE
     Route: 065
  2. PANITUMUMAB [Suspect]
     Active Substance: PANITUMUMAB
     Indication: GASTRIC CANCER
     Dosage: ON DAY 1 OF EVERY 2 WEEK CYCLE
     Route: 065
  3. FOLINIC ACID [Suspect]
     Active Substance: LEUCOVORIN
     Indication: GASTRIC CANCER
     Dosage: ON DAY 1 AND 2 OF EACH 2 WEEK CYCLE
     Route: 065
  4. DOCETAXEL. [Suspect]
     Active Substance: DOCETAXEL
     Indication: GASTRIC CANCER
     Dosage: ON DAY 1 OF EACH CYCLE 2 WEEK CYCLE
     Route: 065
  5. PEGFILGRASTIM [Concomitant]
     Active Substance: PEGFILGRASTIM
     Dosage: ON DAY 3
  6. FLUOROURACIL. [Suspect]
     Active Substance: FLUOROURACIL
     Indication: GASTRIC CANCER
     Dosage: AS CONTINUOUS INFUSION OVER 22 HRS ON DAYS 1 AND 2 EVERY 2 WEEKS
     Route: 065
  7. FLUOROURACIL. [Suspect]
     Active Substance: FLUOROURACIL
     Indication: GASTRIC CANCER
     Dosage: BOLUS ON DAY 1 AND 2 OF EACH 2 WEEK CYCLE

REACTIONS (1)
  - Gastric haemorrhage [Fatal]
